FAERS Safety Report 9629586 (Version 2)
Quarter: 2013Q4

REPORT INFORMATION
  Report Type: Report from Study
  Country: US (occurrence: US)
  Receive Date: 20131017
  Receipt Date: 20131028
  Transmission Date: 20140711
  Serious: Yes (Life-Threatening, Hospitalization)
  Sender: FDA-Public Use
  Company Number: US-SA-2013SA104325

PATIENT
  Age: 49 Year
  Sex: Female

DRUGS (9)
  1. OXALIPLATIN [Suspect]
     Indication: COLON CANCER
     Dosage: DAILY DOSE: 85MG/M
     Route: 065
  2. BEVACIZUMAB [Suspect]
     Indication: COLON CANCER
     Dosage: 1 IN 14 DAYS
     Route: 042
     Dates: start: 20130514
  3. BEVACIZUMAB [Suspect]
     Indication: RECTAL CANCER
     Dosage: 1 IN 14 DAYS
     Route: 042
     Dates: start: 20130514
  4. LEUCOVORIN [Suspect]
     Indication: COLON CANCER
     Dosage: DOSE: 400 MG/M
     Route: 065
  5. 5-FU [Suspect]
     Indication: COLON CANCER
     Dosage: DAILY DOSE: 2400 MG/M
     Route: 065
  6. FOLIC ACID [Concomitant]
     Dates: start: 20130918
  7. PROVENTIL [Concomitant]
     Dosage: FORM: INHALER DOSE:2 PUFF(S)
     Dates: start: 20130916
  8. THIAMINE HYDROCHLORIDE [Concomitant]
     Dates: start: 20130918
  9. TRAMADOL HYDROCHLORIDE [Concomitant]
     Dates: start: 20130909

REACTIONS (1)
  - Air embolism [Not Recovered/Not Resolved]
